FAERS Safety Report 15563324 (Version 2)
Quarter: 2019Q1

REPORT INFORMATION
  Report Type: Report from Study
  Country: US (occurrence: US)
  Receive Date: 20181029
  Receipt Date: 20190131
  Transmission Date: 20190417
  Serious: Yes (Other)
  Sender: FDA-Public Use
  Company Number: US-PFIZER INC-2018438821

PATIENT
  Sex: Female

DRUGS (3)
  1. ALISERTIB [Suspect]
     Active Substance: ALISERTIB
     Dosage: 20 MG, 2X/DAY (ENTERIC COATED)
     Route: 048
  2. PACLITAXEL. [Suspect]
     Active Substance: PACLITAXEL
     Indication: OVARIAN CANCER
     Dosage: 80 MG/M2, CYCLIC (ON DAYS 1, 8, AND 15, IN 28-DAY CYCLES)
     Route: 042
  3. ALISERTIB [Suspect]
     Active Substance: ALISERTIB
     Indication: OVARIAN CANCER
     Dosage: 10 MG, 2X/DAY (ENTERIC COATED, ON DAYS 1 TO 3, 8 TO 10, AND 15 TO 17 IN 28-DAY CYCLES, DOSES WERE E)
     Route: 048

REACTIONS (1)
  - Stomatitis [Unknown]
